FAERS Safety Report 4851896-0 (Version None)
Quarter: 2005Q4

REPORT INFORMATION
  Report Type: 
  Country: None (occurrence: None)
  Receive Date: 20051213
  Receipt Date: 20051205
  Transmission Date: 20060501
  Serious: Yes (Death)
  Sender: FDA-Public Use
  Company Number: FR-AVENTIS-200514009FR

PATIENT
  Age: 81 Year
  Sex: Female

DRUGS (5)
  1. LASIX [Suspect]
     Indication: DRUG USE FOR UNKNOWN INDICATION
     Route: 048
     Dates: end: 20041113
  2. COUMADIN [Suspect]
     Indication: PULMONARY EMBOLISM
     Route: 048
     Dates: end: 20041113
  3. FORLAX [Concomitant]
     Indication: CONSTIPATION
     Route: 048
     Dates: end: 20041113
  4. SPECIAFOLDINE [Concomitant]
     Indication: DRUG USE FOR UNKNOWN INDICATION
     Route: 048
     Dates: end: 20041113
  5. ATHYMIL [Concomitant]
     Indication: DYSTHYMIC DISORDER
     Route: 048
     Dates: end: 20041113

REACTIONS (4)
  - FALL [None]
  - HAEMATOMA [None]
  - HAEMORRHAGE [None]
  - MENDELSON'S SYNDROME [None]
